FAERS Safety Report 9602127 (Version 1)
Quarter: 2013Q4

REPORT INFORMATION
  Report Type: Spontaneous
  Country: CN (occurrence: None)
  Receive Date: 20131002
  Receipt Date: 20131002
  Transmission Date: 20140711
  Serious: Yes (Hospitalization)
  Sender: FDA-Public Use
  Company Number: 2013P1019717

PATIENT
  Age: 50 Year
  Sex: Male

DRUGS (1)
  1. ZINACEF [Suspect]
     Indication: INFECTION PROPHYLAXIS
     Route: 042
     Dates: start: 20130917, end: 20130917

REACTIONS (2)
  - Cardiac arrest [None]
  - Blood pressure decreased [None]
